FAERS Safety Report 21473253 (Version 1)
Quarter: 2022Q4

REPORT INFORMATION
  Report Type: Spontaneous
  Country: US (occurrence: US)
  Receive Date: 20221018
  Receipt Date: 20221018
  Transmission Date: 20230112
  Serious: No
  Sender: FDA-Public Use
  Company Number: US-ABBVIE-4141543

PATIENT
  Age: 66 Year
  Sex: Female
  Weight: 61.234 kg

DRUGS (3)
  1. SYNTHROID [Suspect]
     Active Substance: LEVOTHYROXINE SODIUM
     Indication: Autoimmune thyroiditis
     Route: 048
     Dates: start: 202208, end: 20221001
  2. SYNTHROID [Suspect]
     Active Substance: LEVOTHYROXINE SODIUM
     Indication: Autoimmune thyroiditis
     Route: 048
     Dates: start: 2022
  3. CYTOMEL [Concomitant]
     Active Substance: LIOTHYRONINE SODIUM
     Indication: Autoimmune thyroiditis

REACTIONS (4)
  - Muscle spasms [Unknown]
  - Musculoskeletal stiffness [Unknown]
  - Neck deformity [Unknown]
  - Neck pain [Unknown]

NARRATIVE: CASE EVENT DATE: 20220901
